FAERS Safety Report 10182125 (Version 1)
Quarter: 2014Q2

REPORT INFORMATION
  Report Type: Spontaneous
  Country: DE (occurrence: DE)
  Receive Date: 20140520
  Receipt Date: 20140520
  Transmission Date: 20141212
  Serious: Yes (Other)
  Sender: FDA-Public Use
  Company Number: DE-ROCHE-1399594

PATIENT
  Age: 59 Year
  Sex: Male
  Weight: 88 kg

DRUGS (5)
  1. PEGASYS [Suspect]
     Indication: HEPATITIS C
     Route: 065
     Dates: start: 20140224
  2. COPEGUS [Suspect]
     Indication: HEPATITIS C
     Route: 065
     Dates: start: 20140224
  3. SOVALDI [Suspect]
     Indication: HEPATITIS C
     Route: 065
     Dates: start: 20140224
  4. EMTRICITABINE/RILPIVIRINE/TENOFOVIR [Concomitant]
  5. RAMIPRIL [Concomitant]

REACTIONS (2)
  - Viral load increased [Unknown]
  - Drug ineffective [Unknown]
